FAERS Safety Report 4681755-8 (Version None)
Quarter: 2005Q2

REPORT INFORMATION
  Report Type: 
  Country: None (occurrence: None)
  Receive Date: 20050603
  Receipt Date: 20050214
  Transmission Date: 20051028
  Serious: Yes (Life-Threatening, Hospitalization, Other)
  Sender: FDA-Public Use
  Company Number: US-MERCK-0502USA01925

PATIENT
  Age: 64 Year
  Sex: Female

DRUGS (18)
  1. VIOXX [Suspect]
     Route: 048
     Dates: start: 20030101
  2. LOTENSIN [Concomitant]
     Route: 048
  3. HYDROCHLOROTHIAZIDE [Concomitant]
     Route: 048
  4. ZOCOR [Concomitant]
     Route: 048
  5. METOPROLOL-BC [Concomitant]
     Route: 048
  6. PRILOSEC [Concomitant]
     Route: 048
  7. LEXAPRO [Concomitant]
     Route: 048
  8. PLAVIX [Concomitant]
     Route: 048
  9. GLUCOPHAGE [Concomitant]
     Route: 048
  10. HUMALOG MIX 75/25 [Concomitant]
     Route: 051
  11. HUMALOG MIX 75/25 [Concomitant]
     Route: 051
  12. ASPIRIN [Concomitant]
     Route: 048
  13. NITROGLYCERIN [Concomitant]
     Route: 065
  14. ACTOS [Concomitant]
     Route: 048
  15. MECLIZINE [Concomitant]
     Route: 048
  16. TRILEPTAL [Concomitant]
     Route: 048
  17. [THERAPY UNSPECIFIED] [Concomitant]
     Route: 065
  18. ZANAFLEX [Concomitant]
     Route: 048

REACTIONS (23)
  - ARTHROPATHY [None]
  - CALCULUS BLADDER [None]
  - CEREBROVASCULAR ACCIDENT [None]
  - CHEST PAIN [None]
  - CORONARY ARTERY RESTENOSIS [None]
  - DEPRESSION [None]
  - DIABETES MELLITUS INADEQUATE CONTROL [None]
  - DYSPNOEA [None]
  - FOOT FRACTURE [None]
  - GASTRITIS EROSIVE [None]
  - HELICOBACTER GASTRITIS [None]
  - HYPERTENSION [None]
  - HYPOGLYCAEMIA [None]
  - IMPAIRED GASTRIC EMPTYING [None]
  - INTERVERTEBRAL DISC DEGENERATION [None]
  - MYOCARDIAL INFARCTION [None]
  - OEDEMA PERIPHERAL [None]
  - ORAL CANDIDIASIS [None]
  - PAIN IN EXTREMITY [None]
  - RHEUMATOID ARTHRITIS [None]
  - SPINAL OSTEOARTHRITIS [None]
  - URINARY TRACT INFECTION [None]
  - VERTIGO [None]
